FAERS Safety Report 13707167 (Version 6)
Quarter: 2021Q3

REPORT INFORMATION
  Report Type: Spontaneous
  Country: US (occurrence: US)
  Receive Date: 20170630
  Receipt Date: 20210901
  Transmission Date: 20211014
  Serious: Yes (Life-Threatening, Hospitalization, Other)
  Sender: FDA-Public Use
  Company Number: US-PFIZER INC-2017281312

PATIENT
  Age: 28 Year
  Sex: Male
  Weight: 83.91 kg

DRUGS (5)
  1. NORPACE CR [Suspect]
     Active Substance: DISOPYRAMIDE PHOSPHATE
     Indication: ARRHYTHMIA
  2. METOPROLOL. [Suspect]
     Active Substance: METOPROLOL
     Dosage: 50 MG
  3. METOPROLOL. [Suspect]
     Active Substance: METOPROLOL
     Dosage: 25 MG
  4. NORPACE CR [Suspect]
     Active Substance: DISOPYRAMIDE PHOSPHATE
     Indication: HYPERTROPHIC CARDIOMYOPATHY
     Dosage: 150 MG TWICE DAILY (1 MORNING, 1 NIGHT)
     Route: 048
     Dates: start: 1996
  5. ASPIRIN. [Concomitant]
     Active Substance: ASPIRIN
     Indication: CARDIAC DISORDER
     Dosage: 81 MG, DAILY (1 DAY)
     Dates: start: 1996

REACTIONS (9)
  - Seizure [Recovered/Resolved]
  - Chronic kidney disease [Not Recovered/Not Resolved]
  - Urinary retention [Recovered/Resolved]
  - Fatigue [Unknown]
  - Gout [Unknown]
  - Cardiac arrest [Recovered/Resolved]
  - Abdominal discomfort [Unknown]
  - Headache [Unknown]
  - Dizziness [Unknown]

NARRATIVE: CASE EVENT DATE: 1999
